FAERS Safety Report 10520682 (Version 1)
Quarter: 2014Q4

REPORT INFORMATION
  Report Type: Spontaneous
  Country: US (occurrence: US)
  Receive Date: 20141015
  Receipt Date: 20141015
  Transmission Date: 20150528
  Serious: Yes (Hospitalization)
  Sender: FDA-Public Use
  Company Number: PHHY2014US131201

PATIENT
  Age: 45 Year
  Sex: Female

DRUGS (2)
  1. PHENTERMINE [Suspect]
     Active Substance: PHENTERMINE
     Indication: DECREASED APPETITE
  2. PHENTERMINE [Suspect]
     Active Substance: PHENTERMINE
     Indication: WEIGHT DECREASED
     Dosage: 37.5 MG, DAILY
     Route: 065

REACTIONS (4)
  - Subarachnoid haemorrhage [Recovered/Resolved]
  - Nausea [Recovered/Resolved]
  - Confusional state [Recovered/Resolved]
  - Headache [Recovered/Resolved]
